FAERS Safety Report 5389342-3 (Version None)
Quarter: 2007Q3

REPORT INFORMATION
  Report Type: 
  Country: None (occurrence: None)
  Receive Date: 20070713
  Receipt Date: 20070713
  Transmission Date: 20080115
  Serious: Yes (Life-Threatening, Hospitalization)
  Sender: FDA-Public Use
  Company Number: None

PATIENT
  Age: 66 Year
  Sex: Male

DRUGS (2)
  1. MORPHINE [Suspect]
     Indication: PAIN
     Dosage: 4MG PRN IV
     Route: 042
     Dates: start: 20070530, end: 20070607
  2. MORPHINE [Suspect]
     Dosage: 30MG BID PO
     Route: 048
     Dates: start: 20070602, end: 20070606

REACTIONS (3)
  - RESPIRATORY DEPRESSION [None]
  - STUPOR [None]
  - UNRESPONSIVE TO STIMULI [None]
